FAERS Safety Report 12161445 (Version 1)
Quarter: 2016Q1

REPORT INFORMATION
  Report Type: Report from Study
  Country: US (occurrence: US)
  Receive Date: 20160308
  Receipt Date: 20160308
  Transmission Date: 20160526
  Serious: No
  Sender: FDA-Public Use
  Company Number: US-AMGEN-USASL2016026945

PATIENT
  Age: 62 Year
  Sex: Female

DRUGS (2)
  1. ENBREL [Suspect]
     Active Substance: ETANERCEPT
     Indication: PRODUCT USED FOR UNKNOWN INDICATION
     Dosage: 50 MG, QWK
     Route: 065
     Dates: end: 201512
  2. SULFAZINE [Suspect]
     Active Substance: SULFASALAZINE
     Indication: PRODUCT USED FOR UNKNOWN INDICATION
     Dosage: UNK
     Route: 065

REACTIONS (8)
  - Dermatitis [Unknown]
  - Rash pruritic [Unknown]
  - Breast inflammation [Unknown]
  - Malaise [Unknown]
  - Infection [Unknown]
  - Rash [Unknown]
  - Furuncle [Unknown]
  - Mobility decreased [Unknown]

NARRATIVE: CASE EVENT DATE: 201511
